FAERS Safety Report 8641131 (Version 3)
Quarter: 2014Q1

REPORT INFORMATION
  Report Type: Spontaneous
  Country: US (occurrence: None)
  Receive Date: 20120323
  Receipt Date: 20140306
  Transmission Date: 20141002
  Serious: Yes (Hospitalization, Other)
  Sender: FDA-Public Use
  Company Number: 163-21880-11091490

PATIENT
  Age: 63 Year
  Sex: Male
  Weight: 95.3 kg

DRUGS (9)
  1. REVLIMID (LENALIDOMIDE) (25 MILLIGRAM, CAPSULES) [Suspect]
     Indication: PLASMA CELL MYELOMA
     Dosage: 21 IN 21 D
     Route: 048
     Dates: start: 20110722, end: 20111128
  2. REVLIMID (LENALIDOMIDE) (25 MILLIGRAM, CAPSULES) [Suspect]
     Indication: MYELODYSPLASTIC SYNDROME
     Dosage: 21 IN 21 D
     Route: 048
     Dates: start: 20110722, end: 20111128
  3. ALTACE (RAMIPRIL) [Concomitant]
  4. ASA (ACETYLSALICYLIC ACID) [Concomitant]
  5. METOPROLOL [Concomitant]
  6. SIMVASTATIN [Concomitant]
  7. PALVIX (CLOPIDOGREL SULFATE) [Concomitant]
  8. LOVENOX (HEPARIN-FRACTION, SODIUM SALT) [Concomitant]
  9. VELCADE (BORTEZOMIB) [Concomitant]

REACTIONS (2)
  - Pulmonary embolism [None]
  - Deep vein thrombosis [None]
